APPROVED DRUG PRODUCT: OXYCODONE HYDROCHLORIDE
Active Ingredient: OXYCODONE HYDROCHLORIDE
Strength: 5MG/5ML **Federal Register determination that product was not discontinued or withdrawn for safety or effectiveness reasons**
Dosage Form/Route: SOLUTION;ORAL
Application: N201194 | Product #001
Applicant: VISTAPHARM LLC
Approved: Jan 12, 2012 | RLD: Yes | RS: No | Type: DISCN